FAERS Safety Report 6701466-4 (Version None)
Quarter: 2010Q2

REPORT INFORMATION
  Report Type: 
  Country: None (occurrence: None)
  Receive Date: 20100429
  Receipt Date: 20100415
  Transmission Date: 20101027
  Serious: Yes (Other)
  Sender: FDA-Public Use
  Company Number: GR-RANBAXY-2010RR-33336

PATIENT
  Age: 52 Year
  Sex: Female

DRUGS (2)
  1. FLUOXETINE [Suspect]
     Dosage: 60 MG, UNK
  2. ALPRAZOLAM [Concomitant]
     Dosage: UNK

REACTIONS (6)
  - BRADYKINESIA [None]
  - DEPRESSIVE SYMPTOM [None]
  - EXTRAPYRAMIDAL DISORDER [None]
  - MASKED FACIES [None]
  - MUSCLE RIGIDITY [None]
  - SUICIDAL IDEATION [None]
